FAERS Safety Report 8903026 (Version 1)
Quarter: 2012Q4

REPORT INFORMATION
  Report Type: 
  Country: ES (occurrence: ES)
  Receive Date: 20121113
  Receipt Date: 20121113
  Transmission Date: 20130627
  Serious: Yes (Hospitalization)
  Sender: FDA-Public Use
  Company Number: PHHY2012ES103964

PATIENT
  Age: 68 Year
  Sex: Male

DRUGS (2)
  1. MYFORTIC [Suspect]
     Indication: RENAL TRANSPLANT
     Dosage: 1.44 g, UNK
     Route: 048
     Dates: start: 20110228, end: 20110322
  2. PROGRAF [Interacting]
     Indication: RENAL TRANSPLANT
     Dosage: 6 mg, UNK
     Route: 048
     Dates: start: 20110228, end: 20110322

REACTIONS (11)
  - Renal failure acute [Recovering/Resolving]
  - Urine output decreased [Recovering/Resolving]
  - Weight increased [Recovering/Resolving]
  - Metabolic acidosis [Recovering/Resolving]
  - Oedema peripheral [Recovering/Resolving]
  - Dyspnoea paroxysmal nocturnal [Recovering/Resolving]
  - Dyspnoea [Recovering/Resolving]
  - Orthopnoea [Recovering/Resolving]
  - Blood pressure systolic increased [Recovering/Resolving]
  - Drug interaction [Recovering/Resolving]
  - Immunosuppressant drug level increased [Recovering/Resolving]
